FAERS Safety Report 8578185-5 (Version None)
Quarter: 2012Q3

REPORT INFORMATION
  Report Type: 
  Country: None (occurrence: None)
  Receive Date: 20120808
  Receipt Date: 20120806
  Transmission Date: 20120928
  Serious: No
  Sender: FDA-Public Use
  Company Number: US-PFIZER INC-2012191605

PATIENT
  Age: 61 Year
  Sex: Female
  Weight: 74.376 kg

DRUGS (3)
  1. CLONAZEPAM [Concomitant]
     Indication: ANXIETY
     Dosage: UNK
  2. PRISTIQ [Suspect]
     Indication: DEPRESSION
     Dosage: 50 MG, 1X/DAY
     Route: 048
  3. PRISTIQ [Suspect]
     Dosage: UNK
     Route: 048

REACTIONS (4)
  - BURNING SENSATION [None]
  - PARAESTHESIA [None]
  - TREMOR [None]
  - NEUROPATHY PERIPHERAL [None]
